FAERS Safety Report 5143440-8 (Version None)
Quarter: 2006Q4

REPORT INFORMATION
  Report Type: 
  Country: None (occurrence: None)
  Receive Date: 20061101
  Receipt Date: 20061101
  Transmission Date: 20070319
  Serious: Yes (Hospitalization)
  Sender: FDA-Public Use
  Company Number: None

PATIENT
  Sex: Male
  Weight: 80.7 kg

DRUGS (6)
  1. PHENYTOIN [Suspect]
     Indication: CONVULSION
     Dosage: 100 MG BID PO
     Route: 048
     Dates: start: 20060530, end: 20060611
  2. METOPROLOL TARTRATE [Concomitant]
  3. DILANTIN [Concomitant]
  4. RISPERIDONE [Concomitant]
  5. SPIRONOLACTONE [Concomitant]
  6. VENLAFAXINE HCL [Concomitant]

REACTIONS (7)
  - DRUG ERUPTION [None]
  - EOSINOPHILIA [None]
  - OEDEMA PERIPHERAL [None]
  - PARKINSONISM [None]
  - PRURITUS GENERALISED [None]
  - RASH MACULAR [None]
  - SWELLING [None]
